FAERS Safety Report 24125489 (Version 2)
Quarter: 2024Q3

REPORT INFORMATION
  Report Type: Spontaneous
  Country: US (occurrence: US)
  Receive Date: 20240723
  Receipt Date: 20240802
  Transmission Date: 20241016
  Serious: Yes (Hospitalization)
  Sender: STEMLINE THERAPEUTICS
  Company Number: US-Stemline Therapeutics, Inc.-2024ST002975

PATIENT
  Age: 61 Year
  Sex: Female

DRUGS (2)
  1. ORSERDU [Suspect]
     Active Substance: ELACESTRANT
     Indication: Product used for unknown indication
     Route: 048
     Dates: start: 20240307
  2. ORSERDU [Suspect]
     Active Substance: ELACESTRANT
     Dosage: 345 MG
     Route: 048
     Dates: start: 20240725

REACTIONS (8)
  - Respiration abnormal [Not Recovered/Not Resolved]
  - Pain [Not Recovered/Not Resolved]
  - Lymphoedema [Unknown]
  - Cough [Unknown]
  - Constipation [Unknown]
  - Vomiting [Unknown]
  - Nausea [Unknown]
  - Fatigue [Unknown]
